FAERS Safety Report 8873102 (Version 1)
Quarter: 2012Q4

REPORT INFORMATION
  Report Type: Report from Study
  Country: BR (occurrence: BR)
  Receive Date: 20121029
  Receipt Date: 20121029
  Transmission Date: 20130627
  Serious: Yes (Other)
  Sender: FDA-Public Use
  Company Number: BR-AMGEN-BRACT2011019790

PATIENT
  Age: 60 Year
  Sex: Female
  Weight: 54 kg

DRUGS (10)
  1. ETANERCEPT [Suspect]
     Indication: RHEUMATOID ARTHRITIS
     Dosage: 50 mg, weekly
     Route: 058
     Dates: start: 20100611
  2. ETANERCEPT [Suspect]
     Dosage: 50 mg, once weekly
     Route: 058
     Dates: start: 20111103
  3. METHOTREXATE [Concomitant]
     Dosage: 20 mg, weekly
  4. LOSARTAN POTASSIUM [Concomitant]
     Indication: BLOOD PRESSURE
     Dosage: 25 mg, 1x/day
     Dates: start: 2009
  5. CELEBRA [Concomitant]
     Indication: PAIN
     Dosage: 200 mg, as needed (when feeling pain)
     Dates: start: 2007
  6. FOLIC ACID [Concomitant]
     Dosage: 5 mg, weekly
  7. ALENDRONATE SODIUM [Concomitant]
     Indication: BONE DISORDER
     Dosage: 70 mg, once weekly
     Dates: start: 2007
  8. CORUS H [Concomitant]
     Dosage: 25 mg, 1x/day
  9. CALCIUM [Concomitant]
     Dosage: UNK
  10. VITAMINS NOS [Concomitant]
     Dosage: UNK

REACTIONS (4)
  - Lung infection [Unknown]
  - Phlebitis [Recovering/Resolving]
  - Injection site pain [Unknown]
  - Injection site pain [Not Recovered/Not Resolved]
